FAERS Safety Report 6477011 (Version 6)
Quarter: 2013Q3

REPORT INFORMATION
  Report Type: Report from Study
  Country: GB (occurrence: GB)
  Receive Date: 20071129
  Receipt Date: 20130802
  Transmission Date: 20140515
  Serious: Yes (Hospitalization, Disabling, Other)
  Sender: FDA-Public Use
  Company Number: GB-ELI_LILLY_AND_COMPANY-GB200708004674

PATIENT
  Sex: Female
  Weight: 63.49 kg

DRUGS (12)
  1. TERIPARATIDE [Suspect]
     Indication: OSTEOPOROSIS
     Dosage: 20 UG, QD
     Route: 058
     Dates: start: 200707
  2. TERIPARATIDE [Suspect]
     Dosage: 20 UG, QOD
     Route: 058
  3. PREDNISOLONE [Concomitant]
     Indication: SYSTEMIC LUPUS ERYTHEMATOSUS
     Dosage: 3 MG, 2/D
     Route: 065
  4. OMEPRAZOLE [Concomitant]
     Dosage: UNK, UNKNOWN
     Route: 065
  5. THYROXINE [Concomitant]
     Dosage: UNK, UNKNOWN
     Route: 065
  6. FLECAINIDE [Concomitant]
     Indication: ARRHYTHMIA
     Dosage: 50 MG, UNK
     Route: 048
  7. FLECAINIDE [Concomitant]
     Dosage: 100 MG, 2/D
     Route: 048
  8. FLECAINIDE [Concomitant]
     Dosage: 100 MG, DAILY (1/D)
     Route: 048
  9. NEXIUM [Concomitant]
     Indication: GASTRITIS
     Dosage: UNK, UNKNOWN
     Route: 065
  10. CORTICOSTEROID NOS [Concomitant]
     Dosage: UNK, UNKNOWN
     Route: 065
  11. PLAQUENIL [Concomitant]
     Dosage: 200 MG, DAILY (1/D)
     Route: 048
  12. CALCIUM [Concomitant]

REACTIONS (14)
  - Hypercalcaemia [Recovered/Resolved]
  - Arrhythmia [Recovered/Resolved]
  - Atrial fibrillation [Unknown]
  - Angina pectoris [Unknown]
  - Headache [Unknown]
  - Abasia [Unknown]
  - Dizziness [Recovered/Resolved]
  - Abdominal pain upper [Unknown]
  - Insomnia [Unknown]
  - Pain in extremity [Unknown]
  - Nausea [Not Recovered/Not Resolved]
  - Gastritis [Not Recovered/Not Resolved]
  - Blood alkaline phosphatase increased [Not Recovered/Not Resolved]
  - Drug withdrawal syndrome [Unknown]
